FAERS Safety Report 15880993 (Version 1)
Quarter: 2019Q1

REPORT INFORMATION
  Report Type: Spontaneous
  Country: FR (occurrence: FR)
  Receive Date: 20190128
  Receipt Date: 20190128
  Transmission Date: 20190417
  Serious: Yes (Other)
  Sender: FDA-Public Use
  Company Number: FR-MYLANLABS-2019M1007015

PATIENT
  Age: 18 Year
  Sex: Female

DRUGS (1)
  1. LAMOTRIGIN ?MYLAN? [Suspect]
     Active Substance: LAMOTRIGINE
     Indication: EPILEPSY
     Dosage: 75 MILLIGRAM, QD
     Route: 048
     Dates: start: 20180629, end: 20180705

REACTIONS (3)
  - Epilepsy [Recovered/Resolved]
  - Incorrect dose administered [Recovered/Resolved]
  - Product substitution issue [Recovered/Resolved]

NARRATIVE: CASE EVENT DATE: 20180701
